FAERS Safety Report 21791637 (Version 2)
Quarter: 2023Q1

REPORT INFORMATION
  Report Type: Spontaneous
  Country: US (occurrence: US)
  Receive Date: 20221228
  Receipt Date: 20230105
  Transmission Date: 20230418
  Serious: No
  Sender: FDA-Public Use
  Company Number: US-BRISTOL-MYERS SQUIBB COMPANY-2022-159022

PATIENT
  Age: 56 Year
  Sex: Female
  Weight: 114.31 kg

DRUGS (1)
  1. REYATAZ [Suspect]
     Active Substance: ATAZANAVIR SULFATE
     Indication: HIV infection
     Dosage: DOSE : 400 MG;     FREQ : QHS
     Route: 048

REACTIONS (8)
  - Hepatic enzyme increased [Unknown]
  - Illness [Unknown]
  - Hepatic steatosis [Unknown]
  - Gastrooesophageal reflux disease [Unknown]
  - Nausea [Unknown]
  - Taste disorder [Unknown]
  - Fat tissue increased [Unknown]
  - Gastric disorder [Unknown]
